FAERS Safety Report 7788381-2 (Version None)
Quarter: 2011Q3

REPORT INFORMATION
  Report Type: 
  Country: None (occurrence: None)
  Receive Date: 20110930
  Receipt Date: 20110923
  Transmission Date: 20111222
  Serious: Yes (Hospitalization)
  Sender: FDA-Public Use
  Company Number: US-AMGEN-USASP2011049464

PATIENT
  Age: 86 Year
  Sex: Male

DRUGS (1)
  1. XGEVA [Suspect]
     Indication: METASTASES TO BONE
     Dosage: 120 MG, Q4MO
     Dates: start: 20110829

REACTIONS (3)
  - NEUROPATHY PERIPHERAL [None]
  - HYPOCALCAEMIA [None]
  - MALAISE [None]
